FAERS Safety Report 5080475-8 (Version None)
Quarter: 2006Q3

REPORT INFORMATION
  Report Type: 
  Country: None (occurrence: None)
  Receive Date: 20060815
  Receipt Date: 20011006
  Transmission Date: 20061208
  Serious: Yes (Hospitalization)
  Sender: FDA-Public Use
  Company Number: FR-SOLVAY-00201004287

PATIENT
  Age: 25679 Day
  Sex: Female
  Weight: 80 kg

DRUGS (1)
  1. PERINDOPRIL ERBUMINE [Suspect]
     Indication: CORONARY ARTERY DISEASE
     Dosage: DAILY DOSE: UNK.
     Route: 048

REACTIONS (1)
  - CORONARY ARTERY DISEASE [None]
